FAERS Safety Report 25665324 (Version 1)
Quarter: 2025Q3

REPORT INFORMATION
  Report Type: Spontaneous
  Country: US (occurrence: None)
  Receive Date: 20250810
  Receipt Date: 20250810
  Transmission Date: 20251021
  Serious: Yes (unspecified)
  Sender: FDA-CTU
  Company Number: None

PATIENT
  Age: 38 Year
  Sex: Female

DRUGS (7)
  1. NORETHINDRONE [Suspect]
     Active Substance: NORETHINDRONE
  2. CYMBALTA [Concomitant]
     Active Substance: DULOXETINE HYDROCHLORIDE
  3. PAXIL [Concomitant]
     Active Substance: PAROXETINE HYDROCHLORIDE
  4. SIMPONI ARIA [Concomitant]
     Active Substance: GOLIMUMAB
  5. GABAPENTIN [Concomitant]
     Active Substance: GABAPENTIN
  6. AIMOVIG [Concomitant]
     Active Substance: ERENUMAB-AOOE
  7. VITAMIN D [Concomitant]
     Active Substance: VITAMIN D NOS

REACTIONS (3)
  - Suicidal ideation [None]
  - Product use complaint [None]
  - Product communication issue [None]

NARRATIVE: CASE EVENT DATE: 20231005
